FAERS Safety Report 10060470 (Version 2)
Quarter: 2014Q2

REPORT INFORMATION
  Report Type: Report from Study
  Country: IE (occurrence: IE)
  Receive Date: 20140404
  Receipt Date: 20140404
  Transmission Date: 20141212
  Serious: Yes (Life-Threatening, Hospitalization, Other)
  Sender: FDA-Public Use
  Company Number: IE-ABBVIE-13P-229-1180401-00

PATIENT
  Age: 0 Year
  Sex: Female

DRUGS (12)
  1. SYNAGIS [Suspect]
     Indication: LUNG DISORDER
     Route: 030
     Dates: start: 2013
  2. SYNAGIS [Suspect]
     Indication: HEART DISEASE CONGENITAL
  3. LOSEC [Concomitant]
     Indication: PRODUCT USED FOR UNKNOWN INDICATION
  4. LOSEC [Concomitant]
  5. MOTILIUM [Concomitant]
     Indication: PRODUCT USED FOR UNKNOWN INDICATION
  6. MOTILIUM [Concomitant]
  7. ERYTHROMYCIN [Concomitant]
     Indication: PRODUCT USED FOR UNKNOWN INDICATION
  8. ERYTHROMYCIN [Concomitant]
  9. DOMPERIDONE [Concomitant]
     Indication: PRODUCT USED FOR UNKNOWN INDICATION
  10. OMEPRAZOLE [Concomitant]
     Indication: PRODUCT USED FOR UNKNOWN INDICATION
  11. VITAMIN D NOS [Concomitant]
     Indication: PRODUCT USED FOR UNKNOWN INDICATION
     Dosage: PEG
     Route: 050
  12. VITAMIN D NOS [Concomitant]

REACTIONS (7)
  - Dyspnoea [Recovering/Resolving]
  - Lower respiratory tract infection viral [Recovered/Resolved]
  - Pulmonary hypertension [Recovering/Resolving]
  - Viral infection [Recovering/Resolving]
  - Streptococcal infection [Recovering/Resolving]
  - Papilloma viral infection [Recovering/Resolving]
  - Atrioventricular septal defect [Unknown]
